FAERS Safety Report 24652129 (Version 1)
Quarter: 2024Q4

REPORT INFORMATION
  Report Type: Other
  Country: PL (occurrence: PL)
  Receive Date: 20241122
  Receipt Date: 20241122
  Transmission Date: 20250114
  Serious: Yes (Hospitalization)
  Sender: STRIDES
  Company Number: None

PATIENT
  Age: 75 Year
  Sex: Male

DRUGS (15)
  1. FUROSEMIDE [Suspect]
     Active Substance: FUROSEMIDE
     Indication: Hypertension
     Dosage: DOSAGE: FOR SEVERAL DAYS IN THE MORNING AND AT MIDDAY 1-1-0 (BEFORE 2-2-0).
     Route: 065
  2. HYGROTON [Suspect]
     Active Substance: CHLORTHALIDONE
     Indication: Hypertension
     Dosage: 0.5 DOSAGE FORM
     Route: 065
  3. HYGROTON [Suspect]
     Active Substance: CHLORTHALIDONE
     Indication: Cardiac failure
  4. CARVEDILOL [Suspect]
     Active Substance: CARVEDILOL
     Indication: Hypertension
     Dosage: USE IN THE MORNING 1-0-0 QD
     Route: 065
  5. CARVEDILOL [Suspect]
     Active Substance: CARVEDILOL
     Indication: Cardiac failure
  6. METFORMIN HYDROCHLORIDE [Suspect]
     Active Substance: METFORMIN HYDROCHLORIDE
     Indication: Type 2 diabetes mellitus
     Dosage: USE IN THE EVENING 0-0-1. QD
     Route: 065
  7. RAMIPRIL [Suspect]
     Active Substance: RAMIPRIL
     Indication: Hypertension
     Dosage: USE IN THE EVENING 0-0-1. QD
     Route: 065
  8. RAMIPRIL [Suspect]
     Active Substance: RAMIPRIL
     Indication: Cardiac failure
  9. SINTROM [Suspect]
     Active Substance: ACENOCOUMAROL
     Indication: Thrombosis prophylaxis
     Dosage: DOSAGE: 1/2 TABLET ALTERNATING WITH 3/4 TABLET (PREVIOUSLY 3/4 TABLET DAILY BUT REDUCED DUE TO TOO H
     Route: 065
  10. POTASSIUM CHLORIDE [Concomitant]
     Active Substance: POTASSIUM CHLORIDE
     Indication: Hypokalaemia
     Dosage: DOSAGE: 2X1.
     Route: 065
  11. ATORISK [Concomitant]
     Indication: Hypercholesterolaemia
     Dosage: USE IN THE EVENING 0-0-1 QD
     Route: 065
  12. EPLERENONE [Concomitant]
     Active Substance: EPLERENONE
     Indication: Cardiac failure
     Dosage: DOSAGE: 1X1/2.
     Route: 065
  13. GLIBETIC-MF [Concomitant]
     Indication: Type 2 diabetes mellitus
     Dosage: UNK
     Route: 065
  14. ATROVENT [Concomitant]
     Active Substance: IPRATROPIUM BROMIDE
     Indication: Dyspnoea
     Dosage: EMERGENCY USE.
     Route: 065
  15. CONTROLOC [Concomitant]
     Active Substance: PANTOPRAZOLE SODIUM
     Indication: Product used for unknown indication
     Dosage: UNK
     Route: 065

REACTIONS (10)
  - Chronic kidney disease [Recovering/Resolving]
  - Decreased appetite [Recovering/Resolving]
  - Presyncope [Recovering/Resolving]
  - International normalised ratio increased [Recovering/Resolving]
  - Asthenia [Recovering/Resolving]
  - Feeling of body temperature change [Recovering/Resolving]
  - Hypokalaemia [Recovering/Resolving]
  - Blood creatinine increased [Recovering/Resolving]
  - Hyperglycaemia [Recovering/Resolving]
  - Hyperuricaemia [Recovering/Resolving]

NARRATIVE: CASE EVENT DATE: 20200905
